FAERS Safety Report 14332562 (Version 1)
Quarter: 2017Q4

REPORT INFORMATION
  Report Type: Spontaneous
  Country: US (occurrence: US)
  Receive Date: 20171228
  Receipt Date: 20171228
  Transmission Date: 20180321
  Serious: Yes (Other)
  Sender: FDA-Public Use
  Company Number: US-BAYER-2017-246160

PATIENT
  Age: 21 Year
  Sex: Female

DRUGS (3)
  1. MIRALAX [Suspect]
     Active Substance: POLYETHYLENE GLYCOL 3350
     Indication: GASTROINTESTINAL DISORDER
     Dosage: 1 DF, UNK
     Route: 048
  2. PYRIDOXAL PHOSPHATE [Concomitant]
     Active Substance: PYRIDOXAL PHOSPHATE
  3. MINERALS NOS [Concomitant]
     Active Substance: MINERALS

REACTIONS (14)
  - Emotional disorder [Not Recovered/Not Resolved]
  - Aggression [Recovered/Resolved]
  - Seizure [Not Recovered/Not Resolved]
  - Aggression [Not Recovered/Not Resolved]
  - Aggression [Recovered/Resolved]
  - Aggression [Recovered/Resolved]
  - Faeces hard [Not Recovered/Not Resolved]
  - Adverse event [Recovered/Resolved]
  - Constipation [Not Recovered/Not Resolved]
  - Obsessive-compulsive disorder [Not Recovered/Not Resolved]
  - Intentional self-injury [Not Recovered/Not Resolved]
  - Depressed mood [Recovered/Resolved]
  - Regurgitation [Not Recovered/Not Resolved]
  - Abnormal behaviour [Not Recovered/Not Resolved]

NARRATIVE: CASE EVENT DATE: 201005
